FAERS Safety Report 24025272 (Version 1)
Quarter: 2024Q2

REPORT INFORMATION
  Report Type: Report from Study
  Country: US (occurrence: US)
  Receive Date: 20240628
  Receipt Date: 20240628
  Transmission Date: 20240715
  Serious: No
  Sender: FDA-Public Use
  Company Number: US-ROCHE-3542510

PATIENT
  Age: 74 Year
  Sex: Female

DRUGS (2)
  1. PHESGO [Suspect]
     Active Substance: HYALURONIDASE-ZZXF\PERTUZUMAB\TRASTUZUMAB
     Indication: Breast cancer female
     Route: 042
  2. ARIMIDEX [Concomitant]
     Active Substance: ANASTROZOLE

REACTIONS (2)
  - Off label use [Unknown]
  - No adverse event [Unknown]
